FAERS Safety Report 10680532 (Version 3)
Quarter: 2015Q1

REPORT INFORMATION
  Report Type: Spontaneous
  Country: JP (occurrence: JP)
  Receive Date: 20141229
  Receipt Date: 20150121
  Transmission Date: 20150720
  Serious: Yes (Life-Threatening, Hospitalization, Other)
  Sender: FDA-Public Use
  Company Number: PHHY2014JP154217

PATIENT
  Age: 66 Year
  Sex: Female
  Weight: 45 kg

DRUGS (9)
  1. VOLTAREN [Suspect]
     Active Substance: DICLOFENAC SODIUM
     Indication: PAIN
     Dosage: 50 MG, QD
     Route: 054
     Dates: start: 20141005, end: 20141008
  2. ALEVIATIN [Suspect]
     Active Substance: PHENYTOIN SODIUM
     Indication: SEIZURE
     Dosage: 200 MG, QD
     Route: 048
     Dates: start: 20141004, end: 20141010
  3. LOXONIN [Suspect]
     Active Substance: LOXOPROFEN SODIUM
     Indication: HEADACHE
     Dosage: 180 MG, QD
     Route: 048
     Dates: start: 20141004, end: 20141010
  4. ERIL [Suspect]
     Active Substance: ENALAPRIL MALEATE
     Indication: PROPHYLAXIS
     Dosage: 90 MG, QD
     Route: 041
     Dates: start: 20141003, end: 20141010
  5. VOLTAREN [Suspect]
     Active Substance: DICLOFENAC SODIUM
     Dosage: 75 MG, QD
     Route: 054
     Dates: start: 20141013, end: 20141013
  6. EMPYNASE P [Concomitant]
     Active Substance: PROTEIN
     Indication: ABDOMINAL DISTENSION
     Dosage: 54000 IU, UNK
     Route: 048
     Dates: start: 20141004, end: 20141010
  7. VOLTAREN [Suspect]
     Active Substance: DICLOFENAC SODIUM
     Indication: SUBARACHNOID HAEMORRHAGE
     Dosage: 50 MG, QD
     Route: 054
     Dates: start: 20141011, end: 20141012
  8. CEFAZOLIN SODIUM. [Suspect]
     Active Substance: CEFAZOLIN SODIUM
     Indication: PROPHYLAXIS
     Dosage: 2 G, QD
     Route: 041
     Dates: start: 20141001, end: 20141006
  9. MUCOSTA [Concomitant]
     Active Substance: REBAMIPIDE
     Indication: PROPHYLAXIS
     Dosage: 300 MG, UNK
     Route: 048
     Dates: start: 20141004, end: 20141010

REACTIONS (11)
  - Platelet count decreased [Unknown]
  - Mean cell haemoglobin decreased [Unknown]
  - Hepatic enzyme increased [Unknown]
  - Jaundice [Unknown]
  - Interstitial lung disease [Recovered/Resolved]
  - Blood sodium decreased [Unknown]
  - Blood chloride decreased [Unknown]
  - Blood potassium decreased [Unknown]
  - Red blood cell count decreased [Unknown]
  - Hepatic function abnormal [Recovered/Resolved]
  - Pyrexia [Unknown]

NARRATIVE: CASE EVENT DATE: 20141006
